FAERS Safety Report 9499477 (Version 1)
Quarter: 2013Q3

REPORT INFORMATION
  Report Type: Spontaneous
  Country: FR (occurrence: None)
  Receive Date: 20130903
  Receipt Date: 20130903
  Transmission Date: 20140515
  Serious: Yes (Death, Other)
  Sender: FDA-Public Use
  Company Number: SYM-2013-10054

PATIENT
  Age: 37 Year
  Sex: Male

DRUGS (5)
  1. FLUOROURACIL (FLUOROURACIL) (FLUOROURACIL) [Suspect]
     Indication: BLADDER CANCER
     Route: 040
     Dates: start: 2006, end: 2006
  2. CAPECITABINE (CAPECITABINE) (CAPECITABINE) [Suspect]
     Indication: BLADDER CANCER
  3. OXALIPLATIN (OXALIPLATIN) (OXALIPLATIN) [Suspect]
     Indication: BLADDER CANCER
  4. IRINOTECAN (IRINOTECAN) (IRINOTECAN) [Suspect]
     Indication: BLADDER CANCER
     Dates: start: 2006
  5. BEVACIZUMAB [Suspect]
     Indication: BLADDER CANCER

REACTIONS (5)
  - Vomiting [None]
  - Nausea [None]
  - Neutropenia [None]
  - Shock haemorrhagic [None]
  - Procedural complication [None]
